FAERS Safety Report 7543649-X (Version None)
Quarter: 2011Q2

REPORT INFORMATION
  Report Type: 
  Country: None (occurrence: None)
  Receive Date: 20110613
  Receipt Date: 20030520
  Transmission Date: 20111010
  Serious: Yes (Death, Hospitalization)
  Sender: FDA-Public Use
  Company Number: PHHO2003CO06454

PATIENT
  Sex: Female

DRUGS (3)
  1. DIABINESE [Concomitant]
  2. DIOVAN [Suspect]
     Indication: HYPERTENSION
     Dosage: 80 MG, QD
     Route: 048
     Dates: start: 20010501
  3. HERBAL PREPARATION [Concomitant]

REACTIONS (11)
  - HYPERHIDROSIS [None]
  - RESPIRATORY DISTRESS [None]
  - GENERALISED OEDEMA [None]
  - HEPATIC CIRRHOSIS [None]
  - RENAL FAILURE ACUTE [None]
  - HYPOGLYCAEMIA [None]
  - ANURIA [None]
  - PALLOR [None]
  - ACUTE PULMONARY OEDEMA [None]
  - RALES [None]
  - HAEMODYNAMIC INSTABILITY [None]
